FAERS Safety Report 24692221 (Version 1)
Quarter: 2024Q4

REPORT INFORMATION
  Report Type: Spontaneous
  Country: DE (occurrence: DE)
  Receive Date: 20241203
  Receipt Date: 20241203
  Transmission Date: 20250115
  Serious: Yes (Other)
  Sender: ALEXION PHARMACEUTICALS
  Company Number: DE-AstraZeneca-CH-00755067AM

PATIENT
  Age: 74 Year

DRUGS (3)
  1. BEVESPI AEROSPHERE [Suspect]
     Active Substance: FORMOTEROL FUMARATE\GLYCOPYRROLATE
     Indication: Chronic obstructive pulmonary disease
     Dosage: 7.2 MICROGRAM, 4 TIMES DAILY
  2. ALBUTEROL SULFATE [Concomitant]
     Active Substance: ALBUTEROL SULFATE
  3. ALBUTEROL SULFATE [Concomitant]
     Active Substance: ALBUTEROL SULFATE

REACTIONS (10)
  - Diabetes mellitus [Unknown]
  - Hypothyroidism [Unknown]
  - Dyspnoea [Unknown]
  - Chest discomfort [Unknown]
  - Vertigo [Unknown]
  - Device use issue [Unknown]
  - Cough [Unknown]
  - Secretion discharge [Unknown]
  - Fear [Unknown]
  - Speech disorder [Unknown]
